FAERS Safety Report 9636363 (Version 3)
Quarter: 2013Q4

REPORT INFORMATION
  Report Type: Report from Study
  Country: GB (occurrence: GB)
  Receive Date: 20131021
  Receipt Date: 20131115
  Transmission Date: 20140711
  Serious: Yes (Hospitalization)
  Sender: FDA-Public Use
  Company Number: GB-009507513-1310GBR008182

PATIENT
  Age: 65 Year
  Sex: Male
  Weight: 99.1 kg

DRUGS (1)
  1. SITAGLIPTIN PHOSPHATE [Suspect]
     Indication: TYPE 2 DIABETES MELLITUS
     Dosage: TOTAL DAILY DOSE 100MG
     Route: 048
     Dates: start: 20120514

REACTIONS (1)
  - Anaemia [Recovered/Resolved]
